FAERS Safety Report 9345987 (Version 1)
Quarter: 2013Q2

REPORT INFORMATION
  Report Type: Spontaneous
  Country: BR (occurrence: BR)
  Receive Date: 20130613
  Receipt Date: 20130613
  Transmission Date: 20140414
  Serious: Yes (Other)
  Sender: FDA-Public Use
  Company Number: BR-JNJFOC-20130605239

PATIENT
  Age: 41 Year
  Sex: Female
  Weight: 67 kg

DRUGS (1)
  1. NICORETTE GUM 2MG ICE MINT [Suspect]
     Indication: NICOTINE DEPENDENCE
     Dosage: 10 GUMS
     Route: 048
     Dates: start: 2006, end: 20130603

REACTIONS (6)
  - Nicotine dependence [Recovered/Resolved]
  - Intentional drug misuse [Unknown]
  - Headache [Recovered/Resolved]
  - Increased appetite [Unknown]
  - Anxiety [Unknown]
  - Incorrect drug administration duration [None]
